FAERS Safety Report 23328804 (Version 5)
Quarter: 2024Q1

REPORT INFORMATION
  Report Type: Spontaneous
  Country: JP (occurrence: JP)
  Receive Date: 20231222
  Receipt Date: 20240304
  Transmission Date: 20240410
  Serious: Yes (Life-Threatening, Hospitalization, Other)
  Sender: FDA-Public Use
  Company Number: None

PATIENT
  Age: 49 Year
  Sex: Male
  Weight: 92.8 kg

DRUGS (6)
  1. SOGROYA [Suspect]
     Active Substance: SOMAPACITAN-BECO
     Indication: Hypopituitarism
     Dosage: 1.5 MG, QW
     Route: 058
     Dates: start: 202302
  2. SOGROYA [Suspect]
     Active Substance: SOMAPACITAN-BECO
     Dosage: UNK(INCREASED)
     Route: 058
  3. SOGROYA [Suspect]
     Active Substance: SOMAPACITAN-BECO
     Dosage: 2.5 MG, QW
     Route: 058
     Dates: start: 202305, end: 202306
  4. LEVOTHYROXINE SODIUM [Concomitant]
     Active Substance: LEVOTHYROXINE SODIUM
     Indication: Product used for unknown indication
     Dosage: 25 MG, QD
     Route: 048
     Dates: start: 201812
  5. CORTRIL [Concomitant]
     Active Substance: HYDROCORTISONE
     Indication: Product used for unknown indication
     Dosage: 15 MG, QD
     Route: 048
  6. GONADOTROPHIN, CHORIONIC [Concomitant]
     Active Substance: GONADOTROPHIN, CHORIONIC
     Indication: Product used for unknown indication
     Dosage: 5000 IU, QW
     Route: 030

REACTIONS (3)
  - Anti-melanoma differentiation-associated protein 5 antibody positive [Not Recovered/Not Resolved]
  - Dermatomyositis [Not Recovered/Not Resolved]
  - Interstitial lung disease [Not Recovered/Not Resolved]

NARRATIVE: CASE EVENT DATE: 20230401
